FAERS Safety Report 9576043 (Version 1)
Quarter: 2013Q4

REPORT INFORMATION
  Report Type: Spontaneous
  Country: US (occurrence: US)
  Receive Date: 20131001
  Receipt Date: 20131001
  Transmission Date: 20140711
  Serious: No
  Sender: FDA-Public Use
  Company Number: US-AMGEN-USASP2013000912

PATIENT
  Sex: Female
  Weight: 113.38 kg

DRUGS (9)
  1. ENBREL [Suspect]
     Indication: PRODUCT USED FOR UNKNOWN INDICATION
     Dosage: 50 MG, QWK
     Route: 058
  2. ALEVE [Concomitant]
     Dosage: 220 MG, UNK
  3. PREDNISONE [Concomitant]
     Dosage: 5 MG, UNK
  4. FOLIC ACID [Concomitant]
     Dosage: UNK
  5. METHOTREXATE [Concomitant]
     Dosage: 2.5 MG, UNK
  6. VITAMIN D                          /00107901/ [Concomitant]
     Dosage: 400 UNIT, UNK
  7. FIBER LAX [Concomitant]
     Dosage: 625 MG, UNK
  8. CYMBALTA [Concomitant]
     Dosage: 30 MG, UNK
  9. AMITRIPTYLIN [Concomitant]
     Dosage: 50 MG, UNK

REACTIONS (3)
  - Feeling abnormal [Unknown]
  - Disturbance in attention [Unknown]
  - Lethargy [Unknown]
